FAERS Safety Report 4500511-4 (Version None)
Quarter: 2004Q4

REPORT INFORMATION
  Report Type: 
  Country: None (occurrence: None)
  Receive Date: 20041112
  Receipt Date: 20041112
  Transmission Date: 20050328
  Serious: Yes (Other)
  Sender: FDA-Public Use
  Company Number: None

PATIENT
  Age: 48 Year
  Sex: Female
  Weight: 73.9363 kg

DRUGS (1)
  1. MIRCETTE [Suspect]
     Indication: MENORRHAGIA
     Dosage: ONE PO QD/ 3-4 YRS
     Route: 048

REACTIONS (2)
  - MENORRHAGIA [None]
  - PHARMACEUTICAL PRODUCT COMPLAINT [None]
